FAERS Safety Report 4918346-7 (Version None)
Quarter: 2006Q1

REPORT INFORMATION
  Report Type: 
  Country: None (occurrence: None)
  Receive Date: 20060217
  Receipt Date: 20060217
  Transmission Date: 20060701
  Serious: No
  Sender: FDA-Public Use
  Company Number: None

PATIENT
  Sex: Female
  Weight: 62.1428 kg

DRUGS (1)
  1. ZESTRIL [Suspect]
     Indication: HYPERTENSION
     Dosage: 20 MG DAILY PO
     Dates: start: 20010201

REACTIONS (4)
  - DIVERTICULUM [None]
  - GASTRIC ULCER [None]
  - IRRITABLE BOWEL SYNDROME [None]
  - PEPTIC ULCER [None]
